FAERS Safety Report 8615388-5 (Version None)
Quarter: 2012Q3

REPORT INFORMATION
  Report Type: 
  Country: None (occurrence: None)
  Receive Date: 20120823
  Receipt Date: 20120820
  Transmission Date: 20120928
  Serious: Yes (Death, Life-Threatening)
  Sender: FDA-Public Use
  Company Number: JP-PFIZER INC-2012184428

PATIENT
  Age: 84 Year
  Sex: Male

DRUGS (5)
  1. LASIX [Concomitant]
     Indication: CARDIAC FAILURE
     Dosage: 20 MG, 1X/DAY
     Route: 042
     Dates: start: 20120717
  2. METHYLPREDNISOLONE SODIUM SUCCINATE [Concomitant]
     Dosage: UNK
     Route: 041
     Dates: start: 20120716, end: 20120729
  3. FAMOTIDINE [Suspect]
     Indication: GASTRIC ULCER HAEMORRHAGE
     Dosage: 40 MG, 1X/DAY
     Route: 041
     Dates: start: 20120718, end: 20120730
  4. ZYVOX [Suspect]
     Indication: PNEUMONIA
     Dosage: 1200 MG, 1X/DAY
     Route: 041
     Dates: start: 20120717, end: 20120727
  5. BISOLVON [Concomitant]
     Indication: SPUTUM RETENTION
     Dosage: 8 MG, 1X/DAY
     Route: 042
     Dates: start: 20120717

REACTIONS (2)
  - DISSEMINATED INTRAVASCULAR COAGULATION [None]
  - PLATELET COUNT DECREASED [None]
